FAERS Safety Report 21903749 (Version 1)
Quarter: 2023Q1

REPORT INFORMATION
  Report Type: Spontaneous
  Country: US (occurrence: US)
  Receive Date: 20230124
  Receipt Date: 20230124
  Transmission Date: 20230418
  Serious: No
  Sender: FDA-Public Use
  Company Number: US-SA-SAC20230119001887

PATIENT
  Sex: Female
  Weight: 58.9 kg

DRUGS (28)
  1. AUBAGIO [Suspect]
     Active Substance: TERIFLUNOMIDE
     Indication: Multiple sclerosis
     Dosage: 14 MG, QD
     Route: 048
  2. AMBRISENTAN [Suspect]
     Active Substance: AMBRISENTAN
  3. COZAAR [Concomitant]
     Active Substance: LOSARTAN POTASSIUM
  4. LYRICA [Concomitant]
     Active Substance: PREGABALIN
  5. SEROQUEL [Concomitant]
     Active Substance: QUETIAPINE FUMARATE
  6. ALBUTEROL\IPRATROPIUM [Concomitant]
     Active Substance: ALBUTEROL\IPRATROPIUM
  7. REFRESH OPTIVE [Concomitant]
     Active Substance: CARBOXYMETHYLCELLULOSE SODIUM\GLYCERIN
  8. RESTASIS [Concomitant]
     Active Substance: CYCLOSPORINE
  9. NORVASC [Concomitant]
     Active Substance: AMLODIPINE BESYLATE
  10. HYDROXYCHLOROQUINE SULFATE [Concomitant]
     Active Substance: HYDROXYCHLOROQUINE SULFATE
  11. BACLOFEN [Concomitant]
     Active Substance: BACLOFEN
  12. .ALPHA.-TOCOPHEROL [Concomitant]
     Active Substance: .ALPHA.-TOCOPHEROL
  13. OXYBUTYNIN CHLORIDE [Concomitant]
     Active Substance: OXYBUTYNIN CHLORIDE
  14. OMEPRAZOLE [Concomitant]
     Active Substance: OMEPRAZOLE
  15. VITAMIN D3 [Concomitant]
     Active Substance: CHOLECALCIFEROL
  16. CALCIUM [Concomitant]
     Active Substance: CALCIUM
  17. AMOXICILLIN [Concomitant]
     Active Substance: AMOXICILLIN
  18. FOLIC ACID [Concomitant]
     Active Substance: FOLIC ACID
  19. LIDODERM [Concomitant]
     Active Substance: LIDOCAINE
  20. TRAMADOL HCL [Concomitant]
     Active Substance: TRAMADOL HYDROCHLORIDE
  21. COLACE [Concomitant]
     Active Substance: DOCUSATE SODIUM
  22. TOPROL XL [Concomitant]
     Active Substance: METOPROLOL SUCCINATE
  23. ZANAFLEX [Concomitant]
     Active Substance: TIZANIDINE HYDROCHLORIDE
  24. NEURONTIN [Concomitant]
     Active Substance: GABAPENTIN
  25. PLAQUENIL [Concomitant]
     Active Substance: HYDROXYCHLOROQUINE SULFATE
  26. CHOLESTYRAMINE [Concomitant]
     Active Substance: CHOLESTYRAMINE
  27. VITAMIN B COMPLEX [Concomitant]
     Active Substance: CYANOCOBALAMIN\DEXPANTHENOL\NIACINAMIDE\PYRIDOXINE HYDROCHLORIDE\RIBOFLAVIN 5^-PHOSPHATE SODIUM\THIA
  28. POLYETHYLENE GLYCOLS [Concomitant]
     Active Substance: POLYETHYLENE GLYCOLS

REACTIONS (2)
  - Blood pressure fluctuation [Unknown]
  - Hypoglycaemia [Unknown]
